FAERS Safety Report 17153652 (Version 1)
Quarter: 2019Q4

REPORT INFORMATION
  Report Type: Spontaneous
  Country: US (occurrence: US)
  Receive Date: 20191213
  Receipt Date: 20191213
  Transmission Date: 20200122
  Serious: Yes (Other)
  Sender: FDA-Public Use
  Company Number: US-SUNOVION-2019SUN005367

PATIENT
  Sex: Female

DRUGS (3)
  1. CBD OIL [Concomitant]
     Active Substance: CANNABIDIOL\HERBALS
     Dosage: 750 MG
     Route: 065
  2. LUNESTA [Suspect]
     Active Substance: ESZOPICLONE
     Dosage: UNK
     Route: 048
     Dates: start: 2006
  3. LUNESTA [Suspect]
     Active Substance: ESZOPICLONE
     Dosage: 3 MG AS NEEDED AT BEDTIME
     Route: 048

REACTIONS (15)
  - Clumsiness [Unknown]
  - Abnormal sensation in eye [Unknown]
  - Neurotransmitter level altered [Unknown]
  - Anxiety [Unknown]
  - Drug ineffective [Unknown]
  - Serum serotonin increased [Unknown]
  - Fatigue [Unknown]
  - Middle insomnia [Unknown]
  - Epinephrine decreased [Unknown]
  - Alcohol poisoning [Unknown]
  - Norepinephrine decreased [Unknown]
  - Histamine level decreased [Unknown]
  - Feeling abnormal [Unknown]
  - Aggression [Unknown]
  - Intentional product misuse [Unknown]
